FAERS Safety Report 15361639 (Version 1)
Quarter: 2018Q3

REPORT INFORMATION
  Report Type: Spontaneous
  Country: US (occurrence: US)
  Receive Date: 20180831
  Receipt Date: 20180831
  Transmission Date: 20181010
  Serious: Yes (Other)
  Sender: FDA-Public Use
  Company Number: None

PATIENT
  Age: 48 Year
  Sex: Female
  Weight: 71.8 kg

DRUGS (1)
  1. TOPIRAMATE. [Suspect]
     Active Substance: TOPIRAMATE
     Indication: NEPHROLITHIASIS
     Route: 048
     Dates: start: 20140702, end: 20180612

REACTIONS (3)
  - Flank pain [None]
  - Nephrolithiasis [None]
  - Ureterolithiasis [None]

NARRATIVE: CASE EVENT DATE: 20180531
